FAERS Safety Report 20404928 (Version 1)
Quarter: 2022Q1

REPORT INFORMATION
  Report Type: Spontaneous
  Country: US (occurrence: None)
  Receive Date: 20220128
  Receipt Date: 20220128
  Transmission Date: 20220423
  Serious: Yes (Other)
  Sender: FDA-Public Use
  Company Number: None

PATIENT
  Age: 1 Year
  Sex: Female

DRUGS (1)
  1. VIGABATRIN [Suspect]
     Active Substance: VIGABATRIN
     Indication: Infantile spasms
     Dosage: FREQUENCY : DAILY;?
     Route: 048
     Dates: start: 20210707

REACTIONS (2)
  - Macular pigmentation [None]
  - Maculopathy [None]

NARRATIVE: CASE EVENT DATE: 20211215
